FAERS Safety Report 17634469 (Version 3)
Quarter: 2024Q3

REPORT INFORMATION
  Report Type: Spontaneous
  Country: CA (occurrence: CA)
  Receive Date: 20200406
  Receipt Date: 20240821
  Transmission Date: 20241017
  Serious: Yes (Other)
  Sender: NOVARTIS
  Company Number: None

PATIENT
  Age: 49 Year
  Sex: Female

DRUGS (11)
  1. FULVESTRANT [Suspect]
     Active Substance: FULVESTRANT
     Indication: Breast cancer
     Dosage: UNK (SOLUTION)
     Route: 005
  2. CAPECITABINE [Suspect]
     Active Substance: CAPECITABINE
     Indication: Breast cancer
     Dosage: UNK
     Route: 065
  3. LETROZOLE [Suspect]
     Active Substance: LETROZOLE
     Indication: Breast cancer
     Dosage: 3 DOSAGE FORM
     Route: 065
  4. PACLITAXEL [Suspect]
     Active Substance: PACLITAXEL
     Indication: Breast cancer
     Dosage: UNK (LIQUID INTRAVENOUS)
     Route: 042
  5. CLODRONATE DISODIUM [Suspect]
     Active Substance: CLODRONATE DISODIUM
     Indication: Breast cancer
     Dosage: UNK
     Route: 065
  6. HALAVEN [Suspect]
     Active Substance: ERIBULIN MESYLATE
     Indication: Breast cancer
     Dosage: 2 ML, ONCE/SINGLE
     Route: 042
  7. TAMOXIFEN [Suspect]
     Active Substance: TAMOXIFEN
     Indication: Breast cancer
     Dosage: UNK
     Route: 065
  8. XELODA [Suspect]
     Active Substance: CAPECITABINE
     Indication: Breast cancer
     Dosage: UNK
     Route: 048
  9. ERIBULIN [Suspect]
     Active Substance: ERIBULIN
     Indication: Breast cancer
     Dosage: UNK (INJECTION SINGLE-USE VIAL) (SOLUTION INTRAVENOUS) (6.0 MONTHS)
     Route: 041
  10. IBRANCE [Suspect]
     Active Substance: PALBOCICLIB
     Indication: Breast cancer
     Dosage: UNK
     Route: 065
  11. TAMOXIFEN CITRATE [Suspect]
     Active Substance: TAMOXIFEN CITRATE
     Indication: Breast cancer
     Dosage: UNK
     Route: 065

REACTIONS (10)
  - Immunosuppression [Recovering/Resolving]
  - Malignant neoplasm progression [Recovering/Resolving]
  - Platelet count decreased [Recovering/Resolving]
  - Protein total increased [Recovering/Resolving]
  - Headache [Recovering/Resolving]
  - White blood cell count increased [Recovering/Resolving]
  - Asthenia [Recovering/Resolving]
  - Herpes simplex encephalitis [Recovering/Resolving]
  - Encephalitis herpes [Recovering/Resolving]
  - Neoplasm progression [Recovering/Resolving]
